FAERS Safety Report 8372121-2 (Version None)
Quarter: 2012Q2

REPORT INFORMATION
  Report Type: 
  Country: None (occurrence: None)
  Receive Date: 20120521
  Receipt Date: 20120515
  Transmission Date: 20120825
  Serious: Yes (Hospitalization)
  Sender: FDA-Public Use
  Company Number: GB-AMGEN-GBRSP2012030662

PATIENT
  Age: 68 Year
  Sex: Female
  Weight: 68 kg

DRUGS (7)
  1. DEXAMETHASONE [Concomitant]
     Dosage: 8 MG, BID
  2. CYCLOPHOSPHAMIDE [Concomitant]
     Indication: BREAST CANCER
     Dosage: 850 MG, UNK
     Route: 042
  3. ZOFRAN [Concomitant]
     Dosage: 8 MG, BID
  4. METOCLOPRAMIDE [Concomitant]
     Dosage: 10 MG, TID
  5. EPIRUBICIN [Concomitant]
     Indication: BREAST CANCER
     Dosage: 170 MG, UNK
     Route: 042
  6. NEULASTA [Suspect]
     Indication: NEUTROPENIA
     Dosage: 6 MG, UNK
     Route: 058
     Dates: start: 20120501
  7. FLUOROURACIL [Concomitant]
     Indication: BREAST CANCER
     Dosage: 850 MG, UNK
     Route: 042

REACTIONS (6)
  - DRUG INEFFECTIVE [None]
  - SWELLING FACE [None]
  - NEUTROPENIC SEPSIS [None]
  - ANAPHYLACTIC REACTION [None]
  - SWOLLEN TONGUE [None]
  - ERYTHEMA [None]
